FAERS Safety Report 11686077 (Version 1)
Quarter: 2015Q4

REPORT INFORMATION
  Report Type: Spontaneous
  Country: US (occurrence: US)
  Receive Date: 20151030
  Receipt Date: 20151030
  Transmission Date: 20160304
  Serious: Yes (Other)
  Sender: FDA-Public Use
  Company Number: US-BAYER-2015-451885

PATIENT
  Age: 57 Year
  Sex: Female

DRUGS (2)
  1. CLIMARA [Suspect]
     Active Substance: ESTRADIOL
     Dosage: DAILY DOSE .025 MG
     Route: 062
     Dates: end: 201506
  2. CLIMARA [Suspect]
     Active Substance: ESTRADIOL
     Dosage: DAILY DOSE .025 MG
     Route: 062
     Dates: start: 20151005

REACTIONS (2)
  - Product adhesion issue [Not Recovered/Not Resolved]
  - Surgery [None]
